FAERS Safety Report 8993394 (Version 2)
Quarter: 2013Q1

REPORT INFORMATION
  Report Type: Spontaneous
  Country: US (occurrence: US)
  Receive Date: 20130102
  Receipt Date: 20130212
  Transmission Date: 20140127
  Serious: Yes (Other)
  Sender: FDA-Public Use
  Company Number: US-PFIZER INC-2013000061

PATIENT
  Age: 69 Year
  Sex: Female
  Weight: 72.57 kg

DRUGS (7)
  1. LYRICA [Suspect]
     Indication: NEURALGIA
     Dosage: 75 MG, 3X/DAY
     Route: 048
  2. GEODON [Suspect]
     Indication: SCHIZOPHRENIA
     Dosage: 80 MG, 2X/DAY
     Route: 048
  3. DILANTIN [Suspect]
     Indication: EPILEPSY
     Dosage: 100 MG(TWO 50MG TABLETS), 4X/DAY
     Route: 048
  4. DILANTIN [Suspect]
     Indication: EPILEPSY
     Dosage: 100 MG, 4X/DAY
     Route: 048
  5. KLONOPIN [Concomitant]
     Dosage: UNK, 3X/DAY
  6. BUSPAR [Concomitant]
     Dosage: UNK
  7. LEXAPRO [Concomitant]
     Dosage: UNK

REACTIONS (2)
  - Convulsion [Not Recovered/Not Resolved]
  - Drug ineffective [Unknown]
